FAERS Safety Report 5235080-7 (Version None)
Quarter: 2007Q1

REPORT INFORMATION
  Report Type: 
  Country: None (occurrence: None)
  Receive Date: 20070207
  Receipt Date: 20070124
  Transmission Date: 20070707
  Serious: Yes (Life-Threatening)
  Sender: FDA-Public Use
  Company Number: 2006JP000213

PATIENT
  Age: 68 Year
  Sex: Male
  Weight: 66 kg

DRUGS (15)
  1. TACROLIMUS CAPSULES (TACROLIMUS CAPSULES) [Suspect]
     Indication: RHEUMATOID ARTHRITIS
     Dosage: SEE IMAGE
     Route: 048
     Dates: start: 20051227, end: 20060109
  2. PREDNISOLONE [Suspect]
     Dosage: 8 MG, ORAL
     Route: 048
     Dates: end: 20060110
  3. PREDNISOLONE [Suspect]
     Dosage: 8 MG, ORAL
     Route: 048
     Dates: start: 20060111, end: 20060124
  4. PREDNISOLONE [Suspect]
     Dosage: 8 MG, ORAL
     Route: 048
     Dates: start: 20060125, end: 20060131
  5. VOLTAREN [Concomitant]
  6. INDACIN (INDOMETACIN) [Concomitant]
  7. GLYCOL SALICYLATE (GLYCOL SALICYLATE) [Concomitant]
  8. LANSOPRAZOLE [Concomitant]
  9. AMLODIPINE BESYLATE [Concomitant]
  10. ALFAROL (ALACALCIDOL) CAPSULE [Concomitant]
  11. LIVALO (ITAVASTATIN CALCIUM) [Concomitant]
  12. LOSARTAN POTASSIUM [Concomitant]
  13. BONALON (ALENDRONIC ACID) [Concomitant]
  14. MAGNESIUM OXIDE (MAGNESIUM OXIDE) [Concomitant]
  15. SELBEX (TEPRENONE) [Concomitant]

REACTIONS (2)
  - ARTHRITIS BACTERIAL [None]
  - OSTEOMYELITIS [None]
